FAERS Safety Report 8600278 (Version 3)
Quarter: 2014Q1

REPORT INFORMATION
  Report Type: Spontaneous
  Country: US (occurrence: US)
  Receive Date: 20120606
  Receipt Date: 20140121
  Transmission Date: 20141002
  Serious: No
  Sender: FDA-Public Use
  Company Number: US-ASTRAZENECA-2012SE35244

PATIENT
  Age: 18488 Day
  Sex: Female

DRUGS (15)
  1. NEXIUM [Suspect]
     Indication: RESPIRATORY DISORDER
     Route: 048
     Dates: start: 20090213
  2. NEXIUM [Suspect]
     Indication: FLATULENCE
     Route: 048
     Dates: start: 20090213
  3. NEXIUM [Suspect]
     Indication: GASTROOESOPHAGEAL REFLUX DISEASE
     Route: 048
     Dates: start: 20090213
  4. ALPRAZOLAM [Concomitant]
     Dates: start: 20090108
  5. CIPROFLOXACIN [Concomitant]
     Dates: start: 20090205
  6. EXFORGE [Concomitant]
     Dosage: 5 TO 10 MG
     Dates: start: 20090205
  7. BUPROPION [Concomitant]
     Dates: start: 20090206
  8. GEODON [Concomitant]
     Dates: start: 20090211
  9. FUROSEMIDE [Concomitant]
     Dates: start: 20090218
  10. SEROQUEL [Concomitant]
     Dates: start: 20090227
  11. ESTRADIOL [Concomitant]
     Dates: start: 20090303
  12. TRIHEXYPHENEDYL [Concomitant]
     Dates: start: 20090303
  13. RANITIDINE [Concomitant]
     Dates: start: 20090303
  14. MELOXICAM [Concomitant]
     Dates: start: 20090303
  15. MICARDIS [Concomitant]
     Dates: start: 20090305

REACTIONS (6)
  - Osteoporosis [Unknown]
  - Upper limb fracture [Unknown]
  - Diabetes mellitus [Unknown]
  - Arthropathy [Unknown]
  - Carpal tunnel syndrome [Unknown]
  - Bone cyst [Unknown]
